FAERS Safety Report 20894033 (Version 1)
Quarter: 2022Q2

REPORT INFORMATION
  Report Type: Spontaneous
  Country: US (occurrence: None)
  Receive Date: 20220529
  Receipt Date: 20220529
  Transmission Date: 20220721
  Serious: Yes (Other)
  Sender: FDA-Public Use
  Company Number: None

PATIENT
  Age: 31 Year
  Sex: Female
  Weight: 94.05 kg

DRUGS (1)
  1. BEBTELOVIMAB [Suspect]
     Active Substance: BEBTELOVIMAB
     Indication: COVID-19
     Dates: start: 20220528

REACTIONS (4)
  - Foetal heart rate deceleration abnormality [None]
  - Exposure during pregnancy [None]
  - Maternal drugs affecting foetus [None]
  - Dyspnoea [None]

NARRATIVE: CASE EVENT DATE: 20220528
